FAERS Safety Report 5126925-X (Version None)
Quarter: 2006Q4

REPORT INFORMATION
  Report Type: 
  Country: None (occurrence: None)
  Receive Date: 20061010
  Receipt Date: 20060929
  Transmission Date: 20070319
  Serious: Yes (Other)
  Sender: FDA-Public Use
  Company Number: 2006119595

PATIENT
  Age: 73 Year
  Sex: Female

DRUGS (12)
  1. CADUET [Suspect]
     Indication: BLOOD CHOLESTEROL INCREASED
     Dosage: 5/10
     Dates: start: 20060929
  2. CADUET [Suspect]
     Indication: HYPERTENSION
     Dosage: 5/10
     Dates: start: 20060929
  3. PREDNISONE TAB [Concomitant]
  4. THEOPHYLLINE [Concomitant]
  5. ADVAIR (FLUTICASONE PROPIONATE, SALMETERL XINAFOATE) [Concomitant]
  6. SPIRIVA [Concomitant]
  7. ALBUTEROL (SALBUMATOL) [Concomitant]
  8. ALL OTHER THERAPEUTIC PRODUCTS (ALL OTHER THERAPEUTIC PRODUCTS) [Concomitant]
  9. VITAMIN B12 [Concomitant]
  10. POTASSIUM CHLORIDE [Concomitant]
  11. MULTIVITAMIN [Concomitant]
  12. ACETYLSALICYLIC ACID (ACETYLSALCYLIC ACID) [Concomitant]

REACTIONS (1)
  - DIARRHOEA HAEMORRHAGIC [None]
